FAERS Safety Report 13844899 (Version 1)
Quarter: 2017Q3

REPORT INFORMATION
  Report Type: Spontaneous
  Country: GB (occurrence: GB)
  Receive Date: 20170808
  Receipt Date: 20170808
  Transmission Date: 20171127
  Serious: Yes (Other)
  Sender: FDA-Public Use
  Company Number: GB-TEVA-792991ACC

PATIENT

DRUGS (1)
  1. TEMOZOLOMIDE. [Suspect]
     Active Substance: TEMOZOLOMIDE
     Dosage: UNKNOWN
     Route: 048

REACTIONS (4)
  - Bone marrow toxicity [Unknown]
  - Pulmonary embolism [Unknown]
  - Thrombocytopenia [Unknown]
  - Deep vein thrombosis [Unknown]
